FAERS Safety Report 9133935 (Version 2)
Quarter: 2013Q1

REPORT INFORMATION
  Report Type: Spontaneous
  Country: US (occurrence: US)
  Receive Date: 20130303
  Receipt Date: 20130328
  Transmission Date: 20140127
  Serious: Yes (Hospitalization, Other)
  Sender: FDA-Public Use
  Company Number: US-AMGEN-USASP2010005474

PATIENT
  Age: 50 Year
  Sex: Female
  Weight: 108.84 kg

DRUGS (1)
  1. ENBREL [Suspect]
     Indication: PSORIASIS
     Dosage: 25 MG, 2 TIMES/WK
     Route: 058
     Dates: start: 20050101, end: 201010

REACTIONS (6)
  - Invasive ductal breast carcinoma [Recovered/Resolved]
  - Transient ischaemic attack [Recovered/Resolved]
  - Squamous cell carcinoma [Unknown]
  - Skin cancer [Unknown]
  - Weight increased [Not Recovered/Not Resolved]
  - Psoriasis [Not Recovered/Not Resolved]
